FAERS Safety Report 4711939-1 (Version None)
Quarter: 2005Q3

REPORT INFORMATION
  Report Type: 
  Country: None (occurrence: None)
  Receive Date: 20050712
  Receipt Date: 20050701
  Transmission Date: 20060218
  Serious: Yes (Other)
  Sender: FDA-Public Use
  Company Number: PHEH2005US07492

PATIENT
  Age: 7 Year
  Sex: Male

DRUGS (8)
  1. RITALIN [Suspect]
     Indication: ATTENTION DEFICIT/HYPERACTIVITY DISORDER
     Dosage: 10 MG, QD
     Dates: start: 20050101, end: 20050701
  2. ADDERALL 10 [Suspect]
     Indication: ATTENTION DEFICIT/HYPERACTIVITY DISORDER
     Dates: start: 20020401, end: 20050101
  3. CONCERTA [Concomitant]
     Indication: ATTENTION DEFICIT/HYPERACTIVITY DISORDER
     Dosage: 18 MG, UNK
     Dates: start: 20040801, end: 20050107
  4. REMERON [Concomitant]
     Indication: DEPRESSION
     Dosage: 7.5 MG, UNK
     Dates: start: 20040901, end: 20050501
  5. MELATONIN [Concomitant]
     Indication: SLEEP DISORDER
     Dates: start: 20040901, end: 20050501
  6. BELLADONNA EXTRACT [Concomitant]
     Dates: start: 20040901, end: 20050501
  7. PREVACID [Concomitant]
     Indication: DUODENAL ULCER
     Dosage: 30 MG, UNK
     Dates: start: 20050401, end: 20050501
  8. ZITHROMAX [Concomitant]
     Indication: DUODENAL ULCER
     Dates: start: 20050401, end: 20050401

REACTIONS (1)
  - DUODENAL ULCER [None]
